FAERS Safety Report 7685833-0 (Version None)
Quarter: 2011Q3

REPORT INFORMATION
  Report Type: 
  Country: None (occurrence: None)
  Receive Date: 20110816
  Receipt Date: 20110722
  Transmission Date: 20111222
  Serious: Yes (Hospitalization, Other)
  Sender: FDA-Public Use
  Company Number: CH-ROCHE-795533

PATIENT
  Sex: Female

DRUGS (1)
  1. ISOTRETINOIN [Suspect]
     Route: 048
     Dates: start: 20001201, end: 20010101

REACTIONS (9)
  - SUICIDE ATTEMPT [None]
  - DRY MOUTH [None]
  - DEPRESSION [None]
  - SUICIDAL IDEATION [None]
  - RASH MACULAR [None]
  - MELANOCYTIC NAEVUS [None]
  - FATIGUE [None]
  - CYST REMOVAL [None]
  - SYNCOPE [None]
